FAERS Safety Report 6165640-0 (Version None)
Quarter: 2009Q2

REPORT INFORMATION
  Report Type: 
  Country: None (occurrence: None)
  Receive Date: 20090423
  Receipt Date: 20090413
  Transmission Date: 20091009
  Serious: Yes (Other)
  Sender: FDA-Public Use
  Company Number: US-WATSON-2009-02497

PATIENT
  Sex: Female

DRUGS (6)
  1. FORTAMET [Suspect]
     Indication: DIABETES MELLITUS
     Dosage: 1000 MG, BID FOR MANY YEARS
     Route: 048
     Dates: end: 20080701
  2. CONTRAST MEDIA [Suspect]
     Indication: SCAN WITH CONTRAST
     Dosage: UNK
     Route: 042
     Dates: start: 20040101
  3. COZAAR [Concomitant]
     Indication: HYPERTENSION
     Dosage: UNK
     Route: 048
     Dates: start: 20081001
  4. SYNTHROID [Concomitant]
     Indication: HYPOTHYROIDISM
     Dosage: UNK
     Route: 048
     Dates: start: 19710101
  5. PREMARIN [Concomitant]
     Indication: DRUG USE FOR UNKNOWN INDICATION
     Dosage: TAKEN FOR YEARS
     Route: 048
  6. FISH OIL [Concomitant]
     Indication: HYPERCHOLESTEROLAEMIA
     Dosage: UNK
     Route: 048
     Dates: start: 20090101

REACTIONS (3)
  - ANURIA [None]
  - DRUG INTERACTION [None]
  - RENAL FAILURE [None]
